FAERS Safety Report 15954747 (Version 1)
Quarter: 2019Q1

REPORT INFORMATION
  Report Type: Spontaneous
  Country: US (occurrence: US)
  Receive Date: 20190213
  Receipt Date: 20190213
  Transmission Date: 20190417
  Serious: Yes (Hospitalization)
  Sender: FDA-Public Use
  Company Number: US-GW PHARMA-201902USGW0261

PATIENT

DRUGS (1)
  1. EPIDIOLEX [Suspect]
     Active Substance: CANNABIDIOL
     Indication: LENNOX-GASTAUT SYNDROME
     Dosage: 110 MILLIGRAM, BID

REACTIONS (6)
  - Ear infection [Unknown]
  - Cholelithiasis [Unknown]
  - Seizure [Recovered/Resolved]
  - Product dose omission [Recovered/Resolved]
  - Impaired gastric emptying [Unknown]
  - Sinusitis [Unknown]
